FAERS Safety Report 6274944-2 (Version None)
Quarter: 2009Q3

REPORT INFORMATION
  Report Type: 
  Country: None (occurrence: None)
  Receive Date: 20090721
  Receipt Date: 20090715
  Transmission Date: 20100115
  Serious: Yes (Hospitalization)
  Sender: FDA-Public Use
  Company Number: AU-WYE-G03879909

PATIENT
  Sex: Female

DRUGS (3)
  1. PRISTIQ [Suspect]
     Indication: DEPRESSION
     Dosage: 50MG MANE
     Route: 048
     Dates: start: 20090611, end: 20090612
  2. PRISTIQ [Suspect]
     Indication: DECREASED APPETITE
  3. DICLOXACILLIN [Concomitant]
     Indication: STAPHYLOCOCCAL ABSCESS
     Route: 048
     Dates: start: 20090611, end: 20090612

REACTIONS (5)
  - CONFUSIONAL STATE [None]
  - MUSCULAR WEAKNESS [None]
  - PARAPARESIS [None]
  - TETANY [None]
  - TRISMUS [None]
